FAERS Safety Report 8012004-0 (Version None)
Quarter: 2011Q4

REPORT INFORMATION
  Report Type: 
  Country: None (occurrence: None)
  Receive Date: 20111228
  Receipt Date: 20111221
  Transmission Date: 20120403
  Serious: Yes (Hospitalization)
  Sender: FDA-Public Use
  Company Number: NL-GLAXOSMITHKLINE-B0763806A

PATIENT
  Sex: Male
  Weight: 112.4 kg

DRUGS (2)
  1. PAZOPANIB [Suspect]
     Indication: NEOPLASM MALIGNANT
     Dosage: 200MG PER DAY
     Route: 048
     Dates: start: 20111115
  2. IFOSFAMIDE [Suspect]
     Indication: NEOPLASM MALIGNANT
     Dosage: 3MGM2 CYCLIC
     Route: 042
     Dates: start: 20111108

REACTIONS (2)
  - RENAL FAILURE ACUTE [None]
  - GLOMERULAR FILTRATION RATE [None]
